FAERS Safety Report 5007445-X (Version None)
Quarter: 2006Q2

REPORT INFORMATION
  Report Type: 
  Country: None (occurrence: None)
  Receive Date: 20060519
  Receipt Date: 20060519
  Transmission Date: 20061013
  Serious: Yes (Other)
  Sender: FDA-Public Use
  Company Number: None

PATIENT
  Age: 25 Year
  Sex: Female
  Weight: 77.5651 kg

DRUGS (1)
  1. DEFINITY [Suspect]
     Indication: CARDIAC IMAGING PROCEDURE
     Dosage: 1 CC   ONCE   IV BOLUS
     Route: 040
     Dates: start: 20060518, end: 20060518

REACTIONS (2)
  - BRONCHOSPASM [None]
  - DYSPNOEA [None]
